FAERS Safety Report 4626376-8 (Version None)
Quarter: 2005Q2

REPORT INFORMATION
  Report Type: 
  Country: None (occurrence: None)
  Receive Date: 20050325
  Receipt Date: 20050113
  Transmission Date: 20051028
  Serious: No
  Sender: FDA-Public Use
  Company Number: USA050188205

PATIENT
  Age: 77 Year
  Sex: Female
  Weight: 68 kg

DRUGS (2)
  1. FORTEO [Suspect]
     Indication: OSTEOPOROSIS
     Dates: start: 20041101, end: 20050111
  2. DIGITALS [Concomitant]

REACTIONS (2)
  - AGITATION [None]
  - FATIGUE [None]
